FAERS Safety Report 17361427 (Version 1)
Quarter: 2020Q1

REPORT INFORMATION
  Report Type: Spontaneous
  Country: US (occurrence: US)
  Receive Date: 20200203
  Receipt Date: 20200203
  Transmission Date: 20200409
  Serious: No
  Sender: FDA-Public Use
  Company Number: US-PFIZER INC-2020044330

PATIENT
  Age: 34 Year
  Sex: Female
  Weight: 59.41 kg

DRUGS (1)
  1. BENZONATATE. [Suspect]
     Active Substance: BENZONATATE
     Dosage: UNK
     Dates: start: 20190103, end: 20190106

REACTIONS (1)
  - Drug ineffective [Unknown]
